FAERS Safety Report 4752259-9 (Version None)
Quarter: 2005Q3

REPORT INFORMATION
  Report Type: 
  Country: None (occurrence: None)
  Receive Date: 20050825
  Receipt Date: 20050817
  Transmission Date: 20060218
  Serious: Yes (Life-Threatening, Hospitalization)
  Sender: FDA-Public Use
  Company Number: 2005UW12218

PATIENT
  Age: 56 Year
  Sex: Female
  Weight: 110 kg

DRUGS (21)
  1. SEROQUEL [Suspect]
     Indication: BIPOLAR I DISORDER
     Dosage: 300 MG TID, 1000 MG HS
     Route: 048
     Dates: end: 20050804
  2. SEROQUEL [Suspect]
     Indication: BIPOLAR DISORDER
     Dosage: 300 MG TID, 1000 MG HS
     Route: 048
     Dates: end: 20050804
  3. SEROQUEL [Suspect]
     Route: 048
     Dates: start: 20050818
  4. SEROQUEL [Suspect]
     Route: 048
     Dates: start: 20050818
  5. FENOFIBRATE [Suspect]
     Indication: BLOOD CHOLESTEROL INCREASED
     Dates: start: 20050724, end: 20050804
  6. FENOFIBRATE [Suspect]
     Indication: BLOOD TRIGLYCERIDES INCREASED
     Dates: start: 20050724, end: 20050804
  7. TOPAMAX [Concomitant]
     Indication: BIPOLAR I DISORDER
     Dosage: 25 MG AM, 125 MG HS
     Route: 048
     Dates: end: 20050804
  8. TOPAMAX [Concomitant]
     Indication: BIPOLAR DISORDER
     Dosage: 25 MG AM, 125 MG HS
     Route: 048
     Dates: end: 20050804
  9. CHLORPROMAZINE HCL [Concomitant]
     Indication: BIPOLAR I DISORDER
     Dates: end: 20050804
  10. CHLORPROMAZINE HCL [Concomitant]
     Indication: BIPOLAR DISORDER
     Dates: end: 20050804
  11. CLONAZEPAM [Concomitant]
     Indication: BIPOLAR I DISORDER
     Dates: end: 20050804
  12. CLONAZEPAM [Concomitant]
     Indication: BIPOLAR DISORDER
     Dates: end: 20050804
  13. CLONAZEPAM [Concomitant]
     Dates: start: 20050815, end: 20050818
  14. CLONAZEPAM [Concomitant]
     Dates: start: 20050815, end: 20050818
  15. ZOPICLONE [Concomitant]
     Route: 048
     Dates: end: 20050804
  16. ALENDRONATE [Concomitant]
     Dosage: EVERY WEDNESDAY
     Route: 048
     Dates: end: 20050804
  17. PANTOPRAZOLE [Concomitant]
     Route: 048
     Dates: end: 20050804
  18. SENOKOT [Concomitant]
     Route: 048
     Dates: end: 20050804
  19. SOFLAX [Concomitant]
     Route: 048
     Dates: end: 20050804
  20. CALCIUM WITH VITAMIN D [Concomitant]
     Dosage: CALCIUM 500 MG, VIT D 125 UNITS
     Route: 048
     Dates: end: 20050804
  21. VITAMIN D [Concomitant]
     Route: 048

REACTIONS (7)
  - HEPATIC ENZYME INCREASED [None]
  - HYPERGLYCAEMIA [None]
  - HYPERKALAEMIA [None]
  - LIFE SUPPORT [None]
  - PANCREATITIS [None]
  - RENAL FAILURE [None]
  - VENTRICULAR EXTRASYSTOLES [None]
